FAERS Safety Report 17068335 (Version 1)
Quarter: 2019Q4

REPORT INFORMATION
  Report Type: Spontaneous
  Country: SE (occurrence: SE)
  Receive Date: 20191123
  Receipt Date: 20191123
  Transmission Date: 20200122
  Serious: Yes (Hospitalization)
  Sender: FDA-Public Use
  Company Number: SE-ACCORD-161930

PATIENT
  Age: 58 Year
  Sex: Male

DRUGS (8)
  1. NITROLINGUAL [Concomitant]
     Active Substance: NITROGLYCERIN
     Dosage: VB
  2. ATORVASTATIN/ATORVASTATIN CALCIUM [Suspect]
     Active Substance: ATORVASTATIN CALCIUM
     Indication: LIPIDS INCREASED
     Dates: start: 201904
  3. OMEPRAZOLE. [Concomitant]
     Active Substance: OMEPRAZOLE
  4. METFORMIN [Concomitant]
     Active Substance: METFORMIN HYDROCHLORIDE
  5. BRILIQUE [Concomitant]
     Active Substance: TICAGRELOR
  6. METOPROLOL. [Concomitant]
     Active Substance: METOPROLOL
  7. TROMBYL [Concomitant]
     Active Substance: ASPIRIN
  8. JANUVIA [Concomitant]
     Active Substance: SITAGLIPTIN PHOSPHATE

REACTIONS (1)
  - Hepatotoxicity [Recovering/Resolving]

NARRATIVE: CASE EVENT DATE: 20190908
